FAERS Safety Report 7141185-6 (Version None)
Quarter: 2010Q4

REPORT INFORMATION
  Report Type: 
  Country: None (occurrence: None)
  Receive Date: 20101122
  Receipt Date: 20101109
  Transmission Date: 20110411
  Serious: Yes (Hospitalization, Other)
  Sender: FDA-Public Use
  Company Number: 2010MA004370

PATIENT
  Age: 33 Year
  Sex: Female
  Weight: 75 kg

DRUGS (1)
  1. FEVERALL [Suspect]
     Dosage: 30 GR; X1

REACTIONS (7)
  - ACUTE PULMONARY OEDEMA [None]
  - HAEMODIALYSIS [None]
  - HEPATIC FAILURE [None]
  - NEPHROPATHY TOXIC [None]
  - OVERDOSE [None]
  - RENAL FAILURE [None]
  - RENAL TUBULAR DISORDER [None]
